FAERS Safety Report 12670166 (Version 2)
Quarter: 2020Q3

REPORT INFORMATION
  Report Type: Spontaneous
  Country: US (occurrence: US)
  Receive Date: 20160821
  Receipt Date: 20200807
  Transmission Date: 20201102
  Serious: No
  Sender: FDA-Public Use
  Company Number: US-BIOGEN-2016BI00280541

PATIENT
  Sex: Male

DRUGS (1)
  1. TECFIDERA [Suspect]
     Active Substance: DIMETHYL FUMARATE
     Indication: MULTIPLE SCLEROSIS
     Route: 048
     Dates: start: 20141022

REACTIONS (4)
  - Pharyngeal abscess [Recovered/Resolved]
  - Off label use [Unknown]
  - Pharyngitis streptococcal [Unknown]
  - Gastrointestinal disorder [Unknown]

NARRATIVE: CASE EVENT DATE: 2016
